FAERS Safety Report 23706724 (Version 1)
Quarter: 2024Q2

REPORT INFORMATION
  Report Type: Spontaneous
  Country: US (occurrence: US)
  Receive Date: 20240404
  Receipt Date: 20240404
  Transmission Date: 20240716
  Serious: Yes (Hospitalization, Other)
  Sender: FDA-Public Use
  Company Number: US-TEVA-VS-3175953

PATIENT
  Age: 54 Year
  Sex: Male

DRUGS (2)
  1. CYCLOSPORINE MODIFIED [Suspect]
     Active Substance: CYCLOSPORINE
     Dosage: MODIFIED CAPSULES
     Route: 065
  2. CYCLOSPORINE MODIFIED [Suspect]
     Active Substance: CYCLOSPORINE
     Dosage: MODIFIED CAPSULES
     Route: 065

REACTIONS (6)
  - Arthropod bite [Unknown]
  - Product odour abnormal [Unknown]
  - Impaired driving ability [Unknown]
  - Skin cancer [Unknown]
  - Cerebrovascular accident [Unknown]
  - Seizure [Unknown]

NARRATIVE: CASE EVENT DATE: 20230101
